FAERS Safety Report 26040765 (Version 2)
Quarter: 2025Q4

REPORT INFORMATION
  Report Type: Spontaneous
  Country: EU (occurrence: EU)
  Receive Date: 20251113
  Receipt Date: 20251124
  Transmission Date: 20260119
  Serious: Yes (Congenital Anomaly)
  Sender: AMGEN
  Company Number: EU-AMGEN-FRASP2025221045

PATIENT

DRUGS (1)
  1. ADALIMUMAB [Suspect]
     Active Substance: ADALIMUMAB
     Indication: Exposure during pregnancy
     Dosage: UNK
     Route: 064

REACTIONS (58)
  - Kidney malformation [Unknown]
  - Nervous system disorder [Unknown]
  - Dysmorphism [Unknown]
  - Urinary tract malformation [Unknown]
  - Heart disease congenital [Unknown]
  - Ureteric stenosis [Unknown]
  - Multiple congenital abnormalities [Unknown]
  - Congenital eye disorder [Unknown]
  - Cytogenetic abnormality [Unknown]
  - Abdominal wall disorder [Unknown]
  - Ventricular septal defect [Unknown]
  - Atrial septal defect [Unknown]
  - Hypospadias [Unknown]
  - Hydronephrosis [Unknown]
  - Urethral atresia [Unknown]
  - Talipes [Unknown]
  - Developmental hip dysplasia [Unknown]
  - Cleft lip and palate [Unknown]
  - Polydactyly [Unknown]
  - Coarctation of the aorta [Unknown]
  - Renal aplasia [Unknown]
  - Microcephaly [Unknown]
  - Atrioventricular septal defect [Unknown]
  - Fallot^s tetralogy [Unknown]
  - Cleft palate [Unknown]
  - Congenital central nervous system anomaly [Unknown]
  - Renal fusion anomaly [Unknown]
  - Ectopic kidney [Unknown]
  - Corrected transposition of great vessels [Unknown]
  - Oesophageal atresia [Unknown]
  - Rectal atresia [Unknown]
  - Anal atresia [Unknown]
  - Anal stenosis [Unknown]
  - Rectal stenosis [Unknown]
  - Rectal stenosis [Unknown]
  - Vascular malformation [Unknown]
  - Trisomy 21 [Unknown]
  - Hydrocephalus [Unknown]
  - Cataract congenital [Unknown]
  - Spina bifida [Unknown]
  - Duodenal atresia [Unknown]
  - Duodenal stenosis [Unknown]
  - Exomphalos [Unknown]
  - Double inlet left ventricle [Unknown]
  - Congenital pulmonary valve atresia [Unknown]
  - Jejunal stenosis [Unknown]
  - Ileal stenosis [Unknown]
  - Urethral valves [Unknown]
  - Anomalous pulmonary venous connection [Unknown]
  - Double outlet right ventricle [Unknown]
  - Skeletal dysplasia [Unknown]
  - Encephalocele [Unknown]
  - Glaucoma [Unknown]
  - Congenital intestinal malformation [Unknown]
  - Double outlet left ventricle [Unknown]
  - Premature baby [Unknown]
  - Small for dates baby [Unknown]
  - Large for dates baby [Unknown]
